FAERS Safety Report 9513433 (Version 1)
Quarter: 2013Q3

REPORT INFORMATION
  Report Type: Spontaneous
  Country: US (occurrence: US)
  Receive Date: 20130910
  Receipt Date: 20130910
  Transmission Date: 20140515
  Serious: No
  Sender: FDA-Public Use
  Company Number: US-TARO-2012P1061275

PATIENT
  Age: 69 Year
  Sex: Female
  Weight: 104.33 kg

DRUGS (4)
  1. WARFARIN SODIUM TABLETS USP 5MG [Suspect]
     Dates: start: 201210, end: 201210
  2. WARFARIN SODIUM TABLETS USP 5MG [Suspect]
     Dates: start: 201210, end: 201210
  3. WARFARIN SODIUM TABLETS USP 5MG [Suspect]
     Dates: start: 201210
  4. UNSPECIFIED CONCOMITANT MEDICATIONS [Concomitant]

REACTIONS (1)
  - International normalised ratio decreased [Unknown]
